FAERS Safety Report 7547480-0 (Version None)
Quarter: 2011Q2

REPORT INFORMATION
  Report Type: 
  Country: None (occurrence: None)
  Receive Date: 20110614
  Receipt Date: 20110609
  Transmission Date: 20111010
  Serious: Yes (Disabling, Other)
  Sender: FDA-Public Use
  Company Number: US-ABBOTT-11P-163-0731499-00

PATIENT
  Sex: Female

DRUGS (15)
  1. VITAMIN B-12 [Concomitant]
     Indication: CROHN'S DISEASE
  2. RESTORIL [Concomitant]
     Indication: INSOMNIA
  3. CLARINEX [Concomitant]
     Indication: HYPERSENSITIVITY
  4. NITROGLYCERIN [Concomitant]
     Indication: ANGINA PECTORIS
  5. ATENOLOL [Concomitant]
     Indication: HYPERTENSION
  6. VANCOMYCIN [Suspect]
     Indication: PRODUCT USED FOR UNKNOWN INDICATION
  7. ASACOL [Concomitant]
     Indication: CROHN'S DISEASE
  8. TRENTAL [Concomitant]
     Indication: BLOOD DISORDER
     Dates: end: 20110301
  9. ERYTHROMYCIN [Suspect]
     Indication: PRODUCT USED FOR UNKNOWN INDICATION
  10. ZANTAC [Concomitant]
     Indication: GASTROOESOPHAGEAL REFLUX DISEASE
  11. ZETIA [Concomitant]
     Indication: BLOOD CHOLESTEROL INCREASED
  12. OXYCODONE HCL [Concomitant]
     Indication: PAIN
  13. STREPTOMYCIN [Suspect]
     Indication: PRODUCT USED FOR UNKNOWN INDICATION
  14. ZANTAC [Concomitant]
     Indication: GASTRITIS
  15. SIMVASTATIN [Concomitant]
     Indication: BLOOD CHOLESTEROL INCREASED

REACTIONS (10)
  - FEELING ABNORMAL [None]
  - DIZZINESS [None]
  - HEADACHE [None]
  - CEREBROVASCULAR ACCIDENT [None]
  - MONOPARESIS [None]
  - GAIT DISTURBANCE [None]
  - LOSS OF CONSCIOUSNESS [None]
  - BLOOD PRESSURE INCREASED [None]
  - HEMIPARESIS [None]
  - HEMIPLEGIA [None]
